FAERS Safety Report 25935309 (Version 1)
Quarter: 2025Q4

REPORT INFORMATION
  Report Type: Report from Study
  Country: CA (occurrence: CA)
  Receive Date: 20251017
  Receipt Date: 20251017
  Transmission Date: 20260117
  Serious: Yes (Death)
  Sender: CSL BEHRING
  Company Number: CA-BEH-2024186759

PATIENT
  Age: 74 Year
  Sex: Male
  Weight: 99.773 kg

DRUGS (9)
  1. HIZENTRA [Suspect]
     Active Substance: HUMAN IMMUNOGLOBULIN G
     Indication: Primary immunodeficiency syndrome
     Dosage: 30 G, QW
     Route: 065
     Dates: start: 20241126
  2. HIZENTRA [Suspect]
     Active Substance: HUMAN IMMUNOGLOBULIN G
     Indication: Chronic inflammatory demyelinating polyradiculoneuropathy
     Dosage: 30 G, QW
     Route: 058
     Dates: start: 20241126, end: 202507
  3. MIDODRINE [Concomitant]
     Active Substance: MIDODRINE
  4. XARELTO [Concomitant]
     Active Substance: RIVAROXABAN
  5. CITALOPRAM [Concomitant]
     Active Substance: CITALOPRAM
  6. ROSUVASTATIN [Concomitant]
     Active Substance: ROSUVASTATIN
  7. VITAMINS [Concomitant]
     Active Substance: VITAMINS
  8. CALCIUM [Concomitant]
     Active Substance: CALCIUM
  9. VITAMIN D [Concomitant]
     Active Substance: VITAMIN D NOS

REACTIONS (8)
  - Death [Fatal]
  - Injection site mass [Unknown]
  - Injection site mass [Unknown]
  - Injection site erythema [Unknown]
  - Injection site mass [Unknown]
  - Injection site mass [Unknown]
  - Incorrect dose administered [Unknown]
  - Product use complaint [Unknown]

NARRATIVE: CASE EVENT DATE: 20241126
